FAERS Safety Report 23740453 (Version 1)
Quarter: 2024Q2

REPORT INFORMATION
  Report Type: Spontaneous
  Country: US (occurrence: US)
  Receive Date: 20240415
  Receipt Date: 20240415
  Transmission Date: 20240716
  Serious: No
  Sender: FDA-Public Use
  Company Number: US-BIOGEN-2024BI01259526

PATIENT
  Sex: Male

DRUGS (1)
  1. TECFIDERA [Suspect]
     Active Substance: DIMETHYL FUMARATE
     Indication: Relapsing multiple sclerosis
     Dosage: TAKE 1 CAPSULE (240 MG) BY MOUTH 2 TIMES DAILY
     Route: 050
     Dates: start: 20210403

REACTIONS (4)
  - Dyspnoea [Unknown]
  - Syncope [Unknown]
  - Visual impairment [Unknown]
  - Flushing [Unknown]
